FAERS Safety Report 19949415 (Version 1)
Quarter: 2021Q4

REPORT INFORMATION
  Report Type: Spontaneous
  Country: US (occurrence: US)
  Receive Date: 20211012
  Receipt Date: 20211012
  Transmission Date: 20220303
  Serious: Yes (Hospitalization)
  Sender: FDA-Public Use
  Company Number: None

PATIENT
  Sex: Male

DRUGS (2)
  1. BOTOX [Suspect]
     Active Substance: ONABOTULINUMTOXINA
     Indication: Torticollis
     Dosage: ?          OTHER FREQUENCY:Q90DAYS;
     Route: 030
     Dates: start: 20180905
  2. NOURIANZ [Suspect]
     Active Substance: ISTRADEFYLLINE
     Indication: Tremor
     Route: 048
     Dates: start: 20200402

REACTIONS (2)
  - Sepsis [None]
  - Atrial fibrillation [None]
